FAERS Safety Report 17579381 (Version 2)
Quarter: 2021Q2

REPORT INFORMATION
  Report Type: Spontaneous
  Country: US (occurrence: US)
  Receive Date: 20200325
  Receipt Date: 20210402
  Transmission Date: 20210716
  Serious: No
  Sender: FDA-Public Use
  Company Number: US-ALLERGAN-2005037US

PATIENT
  Age: 73 Year
  Sex: Female

DRUGS (4)
  1. TRAZODONE [Concomitant]
     Active Substance: TRAZODONE HYDROCHLORIDE
     Dosage: UNK
     Dates: end: 20200130
  2. UNKNOWN PARKINSON^S MEDICATION [Concomitant]
     Indication: PARKINSON^S DISEASE
  3. OXYTROL [Suspect]
     Active Substance: OXYBUTYNIN
     Indication: HYPERTONIC BLADDER
     Dosage: UNK
     Route: 065
     Dates: start: 2019, end: 20200131
  4. UNKNOWN ANTIANXIETY MEDICATION [Concomitant]
     Indication: ANXIETY

REACTIONS (3)
  - Application site rash [Recovered/Resolved]
  - Rash macular [Recovered/Resolved]
  - Application site erythema [Recovered/Resolved]

NARRATIVE: CASE EVENT DATE: 20200131
